FAERS Safety Report 15293562 (Version 1)
Quarter: 2018Q3

REPORT INFORMATION
  Report Type: Spontaneous
  Country: US (occurrence: US)
  Receive Date: 20180820
  Receipt Date: 20180820
  Transmission Date: 20181010
  Serious: Yes (Hospitalization)
  Sender: FDA-Public Use
  Company Number: US-TEVA-794744USA

PATIENT
  Age: 22 Year
  Sex: Female
  Weight: 64.41 kg

DRUGS (8)
  1. VITAMIN B COMPLEX [Concomitant]
     Active Substance: CYANOCOBALAMIN\DEXPANTHENOL\NIACINAMIDE\PYRIDOXINE HYDROCHLORIDE\RIBOFLAVIN 5^-PHOSPHATE SODIUM\THIAMINE HYDROCHLORIDE\VITAMIN B COMPLEX
  2. OCELLA [Concomitant]
     Active Substance: DROSPIRENONE\ETHINYL ESTRADIOL
     Indication: HORMONE SUPPRESSION THERAPY
  3. POTASSIUM [Concomitant]
     Active Substance: POTASSIUM
  4. VENLAFAXINE [Suspect]
     Active Substance: VENLAFAXINE HYDROCHLORIDE
     Indication: OFF LABEL USE
     Dosage: 37.5 MILLIGRAM DAILY;
     Route: 048
     Dates: start: 20170508
  5. COQ10 [Concomitant]
     Active Substance: UBIDECARENONE
  6. VITAMIN D [Concomitant]
     Active Substance: CHOLECALCIFEROL
     Dosage: 50000 MILLIGRAM DAILY;
  7. TOPAMAX [Concomitant]
     Active Substance: TOPIRAMATE
     Indication: VESTIBULAR MIGRAINE
     Dates: start: 201703
  8. MAGNESIUM [Concomitant]
     Active Substance: MAGNESIUM

REACTIONS (4)
  - Dry mouth [Unknown]
  - Drug prescribing error [Unknown]
  - Heart rate increased [Unknown]
  - Off label use [Unknown]

NARRATIVE: CASE EVENT DATE: 20170508
